FAERS Safety Report 7763658-5 (Version None)
Quarter: 2011Q3

REPORT INFORMATION
  Report Type: 
  Country: None (occurrence: None)
  Receive Date: 20110921
  Receipt Date: 20081006
  Transmission Date: 20111222
  Serious: No
  Sender: FDA-Public Use
  Company Number: 2008BI026410

PATIENT
  Sex: Female

DRUGS (2)
  1. TYSABRI [Suspect]
     Indication: MULTIPLE SCLEROSIS
     Route: 042
     Dates: start: 20050109
  2. TYSABRI [Suspect]
     Route: 042
     Dates: start: 20080821, end: 20110323

REACTIONS (3)
  - RASH [None]
  - CENTRAL NERVOUS SYSTEM LESION [None]
  - DERMATITIS CONTACT [None]
